FAERS Safety Report 6182177-3 (Version None)
Quarter: 2009Q2

REPORT INFORMATION
  Report Type: 
  Country: None (occurrence: None)
  Receive Date: 20090505
  Receipt Date: 20090428
  Transmission Date: 20091009
  Serious: Yes (Death)
  Sender: FDA-Public Use
  Company Number: 2009JP002529

PATIENT
  Age: 56 Year
  Sex: Male

DRUGS (9)
  1. FK506(TACROLIMUS) FORMULATION UNKNOWN [Suspect]
     Indication: LUNG TRANSPLANT
  2. CYCLOSPORINE [Concomitant]
  3. AZATIOPRIN [Concomitant]
  4. GLUCOCORTICOSTEROIDS [Concomitant]
  5. CELLCEPT [Concomitant]
  6. TAC ANTIBODY INJECTION [Concomitant]
  7. METHYLPREDNISOLONE [Concomitant]
  8. CORTICOSTEROIDS [Concomitant]
  9. CEPHALOSPORIN C (CEPHALOSPORIN C) [Concomitant]

REACTIONS (4)
  - DILATATION VENTRICULAR [None]
  - LUNG INFECTION [None]
  - LUNG TRANSPLANT REJECTION [None]
  - TRICUSPID VALVE INCOMPETENCE [None]
